FAERS Safety Report 6090195-9 (Version None)
Quarter: 2009Q1

REPORT INFORMATION
  Report Type: 
  Country: None (occurrence: None)
  Receive Date: 20090224
  Receipt Date: 20081208
  Transmission Date: 20090719
  Serious: No
  Sender: FDA-Public Use
  Company Number: US-ABBOTT-08P-163-0491913-00

PATIENT
  Sex: Male
  Weight: 102.15 kg

DRUGS (8)
  1. SIMCOR [Suspect]
     Indication: BLOOD CHOLESTEROL
     Dates: start: 20080801
  2. DILTIAZEM [Concomitant]
     Indication: BLOOD PRESSURE
     Dates: start: 19900101
  3. CLOPIDOGREL [Concomitant]
     Indication: CORONARY ARTERIAL STENT INSERTION
     Dates: start: 20051001
  4. EZETIMIBE [Concomitant]
     Indication: DRUG USE FOR UNKNOWN INDICATION
  5. HYZAAR [Concomitant]
     Indication: BLOOD PRESSURE
     Dosage: 100/25 MG DAILY
  6. HYZAAR [Concomitant]
     Indication: DIURETIC THERAPY
  7. RANITIDINE [Concomitant]
     Indication: DRUG USE FOR UNKNOWN INDICATION
  8. ACETYLSALICYLIC ACID SRT [Concomitant]
     Indication: ANTICOAGULANT THERAPY
     Dates: start: 19800101

REACTIONS (4)
  - ACNE [None]
  - ARTHRALGIA [None]
  - BACK PAIN [None]
  - FURUNCLE [None]
